FAERS Safety Report 11234753 (Version 1)
Quarter: 2015Q3

REPORT INFORMATION
  Report Type: Spontaneous
  Country: US (occurrence: US)
  Receive Date: 20150702
  Receipt Date: 20150702
  Transmission Date: 20151125
  Serious: Yes (Life-Threatening, Hospitalization, Other)
  Sender: FDA-Public Use
  Company Number: US-PFIZER INC-2015216521

PATIENT
  Age: 50 Year
  Sex: Female
  Weight: 58.5 kg

DRUGS (13)
  1. NORCO 10-325 [Concomitant]
     Indication: PAIN
     Dosage: THREE A DAY
  2. PREMARIN [Concomitant]
     Active Substance: ESTROGENS, CONJUGATED
     Indication: ENDOCRINE DISORDER
     Dosage: 1.25 MG PILL
  3. LYRICA [Suspect]
     Active Substance: PREGABALIN
     Indication: RESTLESS LEGS SYNDROME
     Dosage: 100 MG, 2X/DAY
  4. CYMBALTA [Concomitant]
     Active Substance: DULOXETINE HYDROCHLORIDE
     Indication: BIPOLAR DISORDER
     Dosage: 60 MG ONE A DAY
  5. ALBUTEROL- NEBULIZER [Concomitant]
  6. PROVIGIL [Concomitant]
     Active Substance: MODAFINIL
     Dosage: 200 MG, 2X/DAY
  7. LYRICA [Suspect]
     Active Substance: PREGABALIN
     Indication: FIBROMYALGIA
  8. ALBUTEROL INHALER- PRO-AIR [Concomitant]
  9. BUTALCETAMNCF [Concomitant]
     Indication: HEADACHE
     Dosage: 50-325 THREE TABLETS A DAY
  10. LOPRESSOR [Concomitant]
     Active Substance: METOPROLOL TARTRATE
     Indication: BLOOD PRESSURE ABNORMAL
     Dosage: 20MG TWO A DAY
  11. CYMBALTA [Concomitant]
     Active Substance: DULOXETINE HYDROCHLORIDE
     Indication: FIBROMYALGIA
  12. LISINOPRIL. [Concomitant]
     Active Substance: LISINOPRIL
     Indication: BLOOD PRESSURE ABNORMAL
     Dosage: 25 MG, 1X/DAY
  13. VALIUM [Concomitant]
     Active Substance: DIAZEPAM
     Dosage: 10 MG TWO A DAY

REACTIONS (8)
  - Dyspnoea [Unknown]
  - Weight decreased [Unknown]
  - Rib fracture [Unknown]
  - Terminal state [Unknown]
  - Speech disorder [Not Recovered/Not Resolved]
  - Fear [Unknown]
  - Aphonia [Unknown]
  - Dry throat [Not Recovered/Not Resolved]

NARRATIVE: CASE EVENT DATE: 20150123
